FAERS Safety Report 10418075 (Version 1)
Quarter: 2014Q3

REPORT INFORMATION
  Report Type: Spontaneous
  Country: US (occurrence: None)
  Receive Date: 20140828
  Receipt Date: 20140828
  Transmission Date: 20150326
  Serious: Yes (Hospitalization)
  Sender: FDA-Public Use
  Company Number: None

PATIENT
  Age: 48 Year
  Sex: Male
  Weight: 97.4 kg

DRUGS (5)
  1. CITALOPRAM [Concomitant]
     Active Substance: CITALOPRAM HYDROBROMIDE
  2. OXYCODONE [Concomitant]
     Active Substance: OXYCODONE
  3. PREDNISONE. [Concomitant]
     Active Substance: PREDNISONE
  4. INTERLEUKIN-2 [Suspect]
     Active Substance: ALDESLEUKIN
     Indication: CHRONIC GRAFT VERSUS HOST DISEASE
     Dosage: 1.0X10^6 IU/M^2/DAY (SC)
     Route: 058
     Dates: start: 20140724, end: 20140818
  5. BUSPAR [Concomitant]
     Active Substance: BUSPIRONE HYDROCHLORIDE

REACTIONS (6)
  - Pyrexia [None]
  - Influenza like illness [None]
  - Headache [None]
  - Myalgia [None]
  - Musculoskeletal stiffness [None]
  - Chills [None]

NARRATIVE: CASE EVENT DATE: 20140818
